FAERS Safety Report 9819199 (Version 1)
Quarter: 2014Q1

REPORT INFORMATION
  Report Type: Spontaneous
  Country: TR (occurrence: TR)
  Receive Date: 20140115
  Receipt Date: 20140115
  Transmission Date: 20141002
  Serious: Yes (Other)
  Sender: FDA-Public Use
  Company Number: PHHY2014TR002264

PATIENT
  Age: 34 Year
  Sex: Female

DRUGS (1)
  1. RIBAVIRIN [Suspect]
     Indication: PROPHYLAXIS
     Dosage: 1000 MG/DAY
     Route: 048

REACTIONS (11)
  - Obsessive-compulsive disorder [Recovered/Resolved]
  - Obsessive thoughts [Recovered/Resolved]
  - Discomfort [Recovered/Resolved]
  - Restlessness [Recovered/Resolved]
  - Disturbance in attention [Unknown]
  - Psychiatric symptom [Unknown]
  - Anxiety [Recovered/Resolved]
  - Regressive behaviour [Unknown]
  - Feeling guilty [Unknown]
  - Suspiciousness [Recovered/Resolved]
  - Dizziness [Unknown]
